FAERS Safety Report 6928397-9 (Version None)
Quarter: 2010Q3

REPORT INFORMATION
  Report Type: 
  Country: None (occurrence: None)
  Receive Date: 20100812
  Receipt Date: 20100804
  Transmission Date: 20110219
  Serious: Yes (Other)
  Sender: FDA-Public Use
  Company Number: AXC-2010-000206

PATIENT
  Sex: Male

DRUGS (1)
  1. SUCRALFATE [Suspect]
     Indication: PRODUCT USED FOR UNKNOWN INDICATION
     Dosage: INTRAVENOUS
     Route: 042
     Dates: start: 19890115, end: 19890115

REACTIONS (4)
  - BLOOD PH DECREASED [None]
  - BLOOD POTASSIUM INCREASED [None]
  - FEELING HOT [None]
  - INCORRECT ROUTE OF DRUG ADMINISTRATION [None]
